FAERS Safety Report 10142638 (Version 3)
Quarter: 2014Q2

REPORT INFORMATION
  Report Type: Spontaneous
  Country: US (occurrence: US)
  Receive Date: 20140430
  Receipt Date: 20140605
  Transmission Date: 20141212
  Serious: Yes (Other)
  Sender: FDA-Public Use
  Company Number: US-JNJFOC-20140413423

PATIENT
  Sex: Female
  Weight: 49.9 kg

DRUGS (1)
  1. NEOSPORIN ORIGINAL OINTMENT UNSPECIFIED [Suspect]
     Indication: BLISTER
     Dosage: VERY SMALL AMOUNT, THINLY COVERED
     Route: 061

REACTIONS (3)
  - Scar [Not Recovered/Not Resolved]
  - Skin exfoliation [Not Recovered/Not Resolved]
  - Expired product administered [Unknown]
